FAERS Safety Report 5790138-9 (Version None)
Quarter: 2008Q2

REPORT INFORMATION
  Report Type: 
  Country: None (occurrence: None)
  Receive Date: 20080626
  Receipt Date: 20080304
  Transmission Date: 20081010
  Serious: No
  Sender: FDA-Public Use
  Company Number: A0691388A

PATIENT
  Age: 31 Year

DRUGS (1)
  1. ALLI [Suspect]
     Indication: DRUG USE FOR UNKNOWN INDICATION
     Route: 048
     Dates: start: 20071006

REACTIONS (6)
  - ABDOMINAL PAIN UPPER [None]
  - DEPRESSED MOOD [None]
  - DRUG INEFFECTIVE [None]
  - GASTROINTESTINAL DISORDER [None]
  - MENSTRUATION IRREGULAR [None]
  - WEIGHT LOSS POOR [None]
